FAERS Safety Report 6710674-8 (Version None)
Quarter: 2010Q2

REPORT INFORMATION
  Report Type: 
  Country: None (occurrence: None)
  Receive Date: 20100504
  Receipt Date: 20100504
  Transmission Date: 20101027
  Serious: Yes (Life-Threatening, Hospitalization)
  Sender: FDA-Public Use
  Company Number: None

PATIENT
  Age: 75 Year
  Sex: Male
  Weight: 68.5 kg

DRUGS (2)
  1. ZOCOR [Suspect]
  2. SIMVASTATIN [Suspect]

REACTIONS (1)
  - RHABDOMYOLYSIS [None]
